FAERS Safety Report 19871094 (Version 1)
Quarter: 2021Q3

REPORT INFORMATION
  Report Type: Spontaneous
  Country: US (occurrence: US)
  Receive Date: 20210922
  Receipt Date: 20210922
  Transmission Date: 20211014
  Serious: No
  Sender: FDA-Public Use
  Company Number: None

PATIENT
  Age: 40 Year
  Sex: Male
  Weight: 86.85 kg

DRUGS (22)
  1. SENNOSIDES. [Concomitant]
     Active Substance: SENNOSIDES
  2. TRAMADOL. [Concomitant]
     Active Substance: TRAMADOL
  3. BETAMETHASONE DIPROPRIONATE [Concomitant]
     Active Substance: BETAMETHASONE DIPROPIONATE
  4. LISINOPRIL. [Concomitant]
     Active Substance: LISINOPRIL
  5. LIDOCAINE?PRILOCAINE [Concomitant]
     Active Substance: LIDOCAINE\PRILOCAINE
  6. ENSURE HIGH PROTEIN [Concomitant]
  7. FLONASE ALLERGY RELIEF [Concomitant]
     Active Substance: FLUTICASONE PROPIONATE
  8. ONDANSETRON [Concomitant]
     Active Substance: ONDANSETRON
  9. PROMETHAZINE [Concomitant]
     Active Substance: PROMETHAZINE HYDROCHLORIDE
  10. FUROSEMIDE. [Concomitant]
     Active Substance: FUROSEMIDE
  11. LOPERAMIDE [Concomitant]
     Active Substance: LOPERAMIDE
  12. CAPECITABINE TABLET 500MG [Suspect]
     Active Substance: CAPECITABINE
     Indication: COLON CANCER
     Dosage: ?          OTHER FREQUENCY:BID FOR 14/21 DAYS;?
     Route: 048
     Dates: start: 20210222
  13. DEXAMETHASONE. [Concomitant]
     Active Substance: DEXAMETHASONE
  14. DICLOFENAC SODIUM. [Concomitant]
     Active Substance: DICLOFENAC SODIUM
  15. LORATADINE. [Concomitant]
     Active Substance: LORATADINE
  16. OMEPRAZOLE. [Concomitant]
     Active Substance: OMEPRAZOLE
  17. CYCLOBENZAPRINE. [Concomitant]
     Active Substance: CYCLOBENZAPRINE
  18. PROCHLORPERAZINE. [Concomitant]
     Active Substance: PROCHLORPERAZINE
  19. SUCRALFATE. [Concomitant]
     Active Substance: SUCRALFATE
  20. ADVAIR DISKUS [Concomitant]
     Active Substance: FLUTICASONE PROPIONATE\SALMETEROL XINAFOATE
  21. ALBUTEROL. [Concomitant]
     Active Substance: ALBUTEROL
  22. MONTELUKAST [Concomitant]
     Active Substance: MONTELUKAST SODIUM

REACTIONS (1)
  - Paraesthesia [None]

NARRATIVE: CASE EVENT DATE: 20210908
